FAERS Safety Report 6672470-X (Version None)
Quarter: 2010Q2

REPORT INFORMATION
  Report Type: 
  Country: None (occurrence: None)
  Receive Date: 20100408
  Receipt Date: 20100331
  Transmission Date: 20101027
  Serious: Yes (Other)
  Sender: FDA-Public Use
  Company Number: US-ASTRAZENECA-2006UW11005

PATIENT
  Sex: Male
  Weight: 49.9 kg

DRUGS (6)
  1. SEROQUEL [Suspect]
     Route: 048
     Dates: start: 20051101
  2. SEROQUEL [Suspect]
     Dosage: 200MG -400MG AT BEDTIME
     Route: 048
     Dates: start: 20080426
  3. ZOLPIDEM [Concomitant]
     Dates: start: 20070514
  4. CHLORDIAZEPOXIDE [Concomitant]
     Dates: start: 20070514
  5. DEPAKOTE [Concomitant]
     Dates: start: 20080426
  6. WELLBUTRIN SR [Concomitant]
     Dates: start: 20080426

REACTIONS (2)
  - DIABETIC NEUROPATHY [None]
  - TYPE 1 DIABETES MELLITUS [None]
